FAERS Safety Report 10149517 (Version 1)
Quarter: 2014Q2

REPORT INFORMATION
  Report Type: Spontaneous
  Country: GB (occurrence: None)
  Receive Date: 20140430
  Receipt Date: 20140430
  Transmission Date: 20141212
  Serious: Yes (Life-Threatening, Other)
  Sender: FDA-Public Use
  Company Number: AUR-APL-2014-04920

PATIENT
  Age: 40 Year
  Sex: Female

DRUGS (3)
  1. RIBAVIRIN (RIBAVIRIN) [Suspect]
     Indication: HEPATITIS C
     Dates: start: 20140129
  2. INTERFERON (INTERFERON) [Suspect]
     Indication: HEPATITIS C
     Dates: start: 20140129
  3. ZAPONEX (CLOZAPINE) [Suspect]
     Indication: PRODUCT USED FOR UNKNOWN INDICATION
     Route: 048
     Dates: start: 20100923, end: 20140129

REACTIONS (4)
  - Agranulocytosis [None]
  - Platelet count increased [None]
  - Leukopenia [None]
  - Neutropenia [None]
